FAERS Safety Report 9265678 (Version 1)
Quarter: 2013Q2

REPORT INFORMATION
  Report Type: Spontaneous
  Country: US (occurrence: US)
  Receive Date: 20130501
  Receipt Date: 20130501
  Transmission Date: 20140414
  Serious: Yes (Hospitalization)
  Sender: FDA-Public Use
  Company Number: US-ASTRAZENECA-2013SE28349

PATIENT
  Age: 63 Year
  Sex: Male
  Weight: 140.6 kg

DRUGS (14)
  1. NEXIUM [Suspect]
     Indication: HIATUS HERNIA
     Route: 048
     Dates: start: 2009
  2. NEXIUM [Suspect]
     Indication: HIATUS HERNIA
     Route: 048
     Dates: start: 201210, end: 2012
  3. NEXIUM [Suspect]
     Indication: HIATUS HERNIA
     Route: 048
     Dates: start: 201304, end: 201304
  4. OMEPRAZOLE [Suspect]
     Indication: BARRETT^S OESOPHAGUS
     Route: 048
     Dates: start: 20130308, end: 20130416
  5. METROPOLOL TARTRATE [Suspect]
     Indication: HYPERTENSION
     Route: 048
     Dates: start: 2012
  6. LOSARTAN [Concomitant]
     Indication: HYPERTENSION
     Route: 048
     Dates: start: 2012
  7. AMLODIPINE [Concomitant]
     Indication: HYPERTENSION
     Route: 048
     Dates: start: 2012
  8. BUPROPIAN HCL SR [Concomitant]
     Route: 048
     Dates: start: 2012, end: 2012
  9. BUPROPIAN HCL SR [Concomitant]
     Route: 048
     Dates: start: 2012
  10. VENLAFAXINE [Concomitant]
     Indication: BIPOLAR DISORDER
     Route: 048
     Dates: start: 2008
  11. CENTRUM SILVER [Concomitant]
     Dosage: 2 DAILY
     Route: 048
     Dates: start: 2012
  12. OMEGA 3 FISH OIL TABLET [Concomitant]
     Dosage: 2 DAILY
     Route: 048
     Dates: start: 2012
  13. CO ENZYME Q10 [Concomitant]
     Dosage: 1 DAILY
     Route: 048
     Dates: start: 2012
  14. VITAMIN C [Concomitant]
     Route: 048
     Dates: start: 2012

REACTIONS (13)
  - Duodenitis [Unknown]
  - Barrett^s oesophagus [Unknown]
  - Oesophagitis [Unknown]
  - Pain [Unknown]
  - Gastritis [Unknown]
  - Fall [Unknown]
  - Pain in extremity [Unknown]
  - Arthralgia [Unknown]
  - Intentional drug misuse [Unknown]
  - Off label use [Unknown]
  - Off label use [Unknown]
  - Drug ineffective for unapproved indication [Recovered/Resolved]
  - Economic problem [None]
